FAERS Safety Report 6375366-6 (Version None)
Quarter: 2009Q3

REPORT INFORMATION
  Report Type: 
  Country: None (occurrence: None)
  Receive Date: 20090924
  Receipt Date: 20090820
  Transmission Date: 20100115
  Serious: Yes (Hospitalization)
  Sender: FDA-Public Use
  Company Number: PHHO2005AR15342

PATIENT
  Sex: Female
  Weight: 56.8 kg

DRUGS (2)
  1. CGS 20267 T30748+ [Suspect]
     Indication: BREAST CANCER
     Dosage: 2.5 MG, QD
     Route: 048
     Dates: start: 20040323
  2. ZOLEDRONIC ACID [Suspect]
     Dosage: 4MG EVERY 6 MONTHS
     Route: 042
     Dates: start: 20050310

REACTIONS (5)
  - ABDOMINAL PAIN LOWER [None]
  - NEPHROLITHIASIS [None]
  - PYELOCALIECTASIS [None]
  - RED BLOOD CELLS URINE [None]
  - RENAL COLIC [None]
